FAERS Safety Report 6127382-7 (Version None)
Quarter: 2009Q1

REPORT INFORMATION
  Report Type: 
  Country: None (occurrence: None)
  Receive Date: 20090323
  Receipt Date: 20090312
  Transmission Date: 20090719
  Serious: Yes (Other)
  Sender: FDA-Public Use
  Company Number: PHHY2009GB06733

PATIENT
  Sex: Male

DRUGS (6)
  1. EXELON [Suspect]
     Indication: DEMENTIA
     Dosage: 4.6 MG, UNK
     Route: 062
     Dates: start: 20080804
  2. EXELON [Suspect]
     Dosage: 9.5 MG, UNK
     Route: 062
  3. EXELON [Suspect]
     Dosage: 3 MG, UNK
     Route: 048
     Dates: start: 20080108
  4. CO-CARELDOPA [Concomitant]
     Indication: PARKINSON'S DISEASE
     Dosage: 25/100 (2 TABLETS) TDS
     Route: 048
  5. ALENDRONIC ACID [Concomitant]
     Dosage: UNK, OD
  6. ADCAL [Concomitant]
     Dosage: 2 TABLETS, OD

REACTIONS (3)
  - APPLICATION SITE ERYTHEMA [None]
  - APPLICATION SITE URTICARIA [None]
  - RASH GENERALISED [None]
